FAERS Safety Report 11391411 (Version 1)
Quarter: 2015Q3

REPORT INFORMATION
  Report Type: Spontaneous
  Country: US (occurrence: None)
  Receive Date: 20150814
  Receipt Date: 20150814
  Transmission Date: 20151125
  Serious: No
  Sender: FDA-Public Use
  Company Number: None

PATIENT
  Age: 31 Year
  Sex: Female
  Weight: 81.65 kg

DRUGS (3)
  1. MIRENA [Suspect]
     Active Substance: LEVONORGESTREL
  2. MIRENA [Concomitant]
     Active Substance: LEVONORGESTREL
  3. IBUPROFEN. [Concomitant]
     Active Substance: IBUPROFEN

REACTIONS (15)
  - Ovarian cyst ruptured [None]
  - Medical device complication [None]
  - Asthenia [None]
  - Amenorrhoea [None]
  - Aura [None]
  - Ovarian cyst [None]
  - Musculoskeletal disorder [None]
  - Migraine [None]
  - Feeling abnormal [None]
  - Back pain [None]
  - Pelvic pain [None]
  - Vision blurred [None]
  - Acne [None]
  - Abdominal distension [None]
  - Adnexa uteri pain [None]
